FAERS Safety Report 4972663-3 (Version None)
Quarter: 2006Q1

REPORT INFORMATION
  Report Type: 
  Country: None (occurrence: None)
  Receive Date: 20060216
  Receipt Date: 20050817
  Transmission Date: 20060701
  Serious: Yes (Hospitalization, Other)
  Sender: FDA-Public Use
  Company Number: 200508IM000426

PATIENT
  Age: 71 Year
  Sex: Female
  Weight: 81.7 kg

DRUGS (15)
  1. BLINDED THERAPY (INTERFERON GAMMA-1B) [Suspect]
     Indication: IDIOPATHIC PULMONARY FIBROSIS
     Dosage: 100 UG, TIW, SUBCUTANEOUS;200 UG, TIW, SUBCUTANEOUS;100 UG, TIW,SUBCUTANEOUS
     Route: 058
     Dates: start: 20050113, end: 20050126
  2. BLINDED THERAPY (INTERFERON GAMMA-1B) [Suspect]
     Indication: IDIOPATHIC PULMONARY FIBROSIS
     Dosage: 100 UG, TIW, SUBCUTANEOUS;200 UG, TIW, SUBCUTANEOUS;100 UG, TIW,SUBCUTANEOUS
     Route: 058
     Dates: start: 20050128, end: 20050310
  3. BLINDED THERAPY (INTERFERON GAMMA-1B) [Suspect]
     Indication: IDIOPATHIC PULMONARY FIBROSIS
     Dosage: 100 UG, TIW, SUBCUTANEOUS;200 UG, TIW, SUBCUTANEOUS;100 UG, TIW,SUBCUTANEOUS
     Route: 058
     Dates: start: 20050311, end: 20050327
  4. BLINDED THERAPY (INTERFERON GAMMA-1B) [Suspect]
     Dosage: 200 UG, TIW, SUBCUTANEOUS;100 UG, TIW, SUBCUTANEOUS
     Route: 058
     Dates: start: 20050328, end: 20050404
  5. BLINDED THERAPY (INTERFERON GAMMA-1B) [Suspect]
     Dosage: 200 UG, TIW, SUBCUTANEOUS;100 UG, TIW, SUBCUTANEOUS
     Route: 058
     Dates: start: 20050406, end: 20050824
  6. PREDNISONE TAB [Concomitant]
  7. IMURAN [Concomitant]
  8. FOSAMAX [Concomitant]
  9. PREVACID [Concomitant]
  10. KLONOPIN [Concomitant]
  11. TYLENOL [Concomitant]
  12. ZOCOR [Concomitant]
  13. OXYGEN [Concomitant]
  14. MICARDIS [Concomitant]
  15. IBUPROFEN [Concomitant]

REACTIONS (1)
  - PYREXIA [None]
